FAERS Safety Report 15859136 (Version 5)
Quarter: 2019Q2

REPORT INFORMATION
  Report Type: Spontaneous
  Country: US (occurrence: US)
  Receive Date: 20190123
  Receipt Date: 20190416
  Transmission Date: 20190711
  Serious: Yes (Hospitalization)
  Sender: FDA-Public Use
  Company Number: US-SA-2019SA016162

PATIENT
  Age: 59 Year
  Sex: Female

DRUGS (1)
  1. PRALUENT [Suspect]
     Active Substance: ALIROCUMAB
     Indication: LOW DENSITY LIPOPROTEIN INCREASED
     Dosage: 75 MG, QOW
     Route: 058
     Dates: start: 20190111

REACTIONS (9)
  - Flushing [Unknown]
  - Malaise [Unknown]
  - Device use issue [Not Recovered/Not Resolved]
  - Pruritus generalised [Unknown]
  - Rash [Unknown]
  - Hypersensitivity [Unknown]
  - Paraesthesia [Unknown]
  - Inflammation [Unknown]
  - Injection site haemorrhage [Not Recovered/Not Resolved]

NARRATIVE: CASE EVENT DATE: 20190111
